FAERS Safety Report 8559542-X (Version None)
Quarter: 2012Q3

REPORT INFORMATION
  Report Type: 
  Country: None (occurrence: None)
  Receive Date: 20120802
  Receipt Date: 20120725
  Transmission Date: 20120928
  Serious: Yes (Hospitalization)
  Sender: FDA-Public Use
  Company Number: US-BAYER-2012-055920

PATIENT
  Age: 32 Year
  Sex: Female
  Weight: 54.422 kg

DRUGS (10)
  1. HYDROCODONE BITARTRATE + ACETAMINOPHEN [Concomitant]
     Indication: PAIN
     Dosage: 1-2 TABLETS EVERY 4-6 HOURS AS NEEDED
     Route: 048
     Dates: start: 20110224
  2. ALBUTEROL [Concomitant]
     Indication: DYSPNOEA
     Dosage: 90 MCG, 2 PUFFS AS NEEDED
     Dates: start: 20110331, end: 20110414
  3. METHOCARBAMOL [Concomitant]
     Indication: MUSCLE SPASMS
     Dosage: 500 MG,1 TABLET EVERY 6-8 HOURS AS NEEDED
     Route: 048
     Dates: start: 20110224
  4. YAZ [Suspect]
     Indication: PREMENSTRUAL SYNDROME
     Dosage: 1 DF, QD
     Route: 048
     Dates: start: 20100901, end: 20110414
  5. AMOXICILLIN [Concomitant]
     Dosage: 500 MG,1 CAPSULE 3 TIMES A DAY FOR 10 DAYS
     Route: 048
     Dates: start: 20101210
  6. FLUTICASONE PROPIONATE [Concomitant]
     Dosage: 1 OR 2 SPRAYS IN EACH NOSTRIL DAILY
     Route: 045
     Dates: start: 20120325
  7. NAPROXEN [Concomitant]
     Dosage: 500 MG, 1 TABLET 2 TIMES A DAY
     Route: 048
     Dates: start: 20110130
  8. ALLERTEC [Concomitant]
     Indication: SEASONAL ALLERGY
     Dosage: 10 MG,1 DAILY
     Dates: start: 20110101
  9. MULTI-VITAMIN [Concomitant]
     Dosage: 1 PILL DAILY
  10. LORATADINE [Concomitant]
     Indication: HYPERSENSITIVITY
     Dosage: 10 MG, 1 TAB DAILY PRN
     Route: 048
     Dates: start: 20101210, end: 20110414

REACTIONS (5)
  - INJURY [None]
  - DYSPNOEA [None]
  - PULMONARY EMBOLISM [None]
  - DEEP VEIN THROMBOSIS [None]
  - PAIN [None]
